FAERS Safety Report 7440867-6 (Version None)
Quarter: 2011Q2

REPORT INFORMATION
  Report Type: 
  Country: None (occurrence: None)
  Receive Date: 20110427
  Receipt Date: 20100216
  Transmission Date: 20111010
  Serious: Yes (Other)
  Sender: FDA-Public Use
  Company Number: US-BAYER-2011-010186

PATIENT
  Age: 45 Year
  Sex: Male
  Weight: 64 kg

DRUGS (11)
  1. TRASYLOL [Suspect]
     Indication: AORTIC VALVE REPLACEMENT
     Dosage: 1 ML, TEST DOSE
     Route: 042
     Dates: start: 20060109, end: 20060109
  2. VANCOMYCIN [Concomitant]
     Dosage: 1 G, UNK
     Route: 042
  3. LEVOPHED [Concomitant]
     Dosage: VARIED
     Route: 042
     Dates: start: 20060109
  4. TRASYLOL [Suspect]
     Dosage: 50 ML, Q1HR
     Route: 042
     Dates: start: 20060109, end: 20060109
  5. HYDROCHLOROTHIAZIDE [Concomitant]
     Dosage: UNK
  6. DOPAMINE HCL [Concomitant]
     Dosage: 3 ML/HR
     Route: 042
     Dates: start: 20060109
  7. ALEVE (CAPLET) [Concomitant]
     Indication: ARTHRALGIA
     Route: 048
  8. ANCEF [Concomitant]
     Dosage: 1 G, UNK
     Route: 042
  9. TRASYLOL [Suspect]
     Dosage: 200 ML, PRIME
     Route: 042
     Dates: start: 20060109, end: 20060109
  10. VERSED [Concomitant]
     Dosage: VARIED
     Route: 042
     Dates: start: 20060109
  11. IBUPROFEN [Concomitant]
     Indication: BACK PAIN
     Dosage: 400 MG, QID
     Route: 048
     Dates: start: 20050918

REACTIONS (12)
  - PAIN [None]
  - EMOTIONAL DISTRESS [None]
  - ANHEDONIA [None]
  - DEPRESSION [None]
  - UNEVALUABLE EVENT [None]
  - INJURY [None]
  - RENAL IMPAIRMENT [None]
  - STRESS [None]
  - FEAR [None]
  - RENAL INJURY [None]
  - ANXIETY [None]
  - RENAL FAILURE [None]
